FAERS Safety Report 9461371 (Version 1)
Quarter: 2013Q3

REPORT INFORMATION
  Report Type: Spontaneous
  Country: US (occurrence: None)
  Receive Date: 20130814
  Receipt Date: 20130814
  Transmission Date: 20140515
  Serious: No
  Sender: FDA-Public Use
  Company Number: None

PATIENT
  Age: 49 Year
  Sex: Female
  Weight: 81.65 kg

DRUGS (1)
  1. HYDROXYZINE HCL [Suspect]
     Indication: PRURITUS
     Dosage: 25 MG 1-2 TABS EVERY 6 HOURS E2 EVERY 6 HOURS BY MOUTH
     Route: 048
     Dates: start: 20130717, end: 20130730

REACTIONS (2)
  - Headache [None]
  - Pruritus [None]
